FAERS Safety Report 6335861-2 (Version None)
Quarter: 2009Q3

REPORT INFORMATION
  Report Type: 
  Country: None (occurrence: None)
  Receive Date: 20090828
  Receipt Date: 20090818
  Transmission Date: 20100115
  Serious: Yes (Death, Other)
  Sender: FDA-Public Use
  Company Number: 2007-02433

PATIENT
  Age: 58 Year
  Sex: Male
  Weight: 64 kg

DRUGS (16)
  1. VELCADE [Suspect]
     Indication: MULTIPLE MYELOMA
     Dosage: 2.00 MG, INTRAVENOUS
     Route: 042
     Dates: start: 20070320, end: 20070417
  2. GRAN [Concomitant]
  3. SILECE (FLUNITRAZEPAM) [Concomitant]
  4. OMEGACIN [Concomitant]
  5. FUNGUARD [Concomitant]
  6. ZOMETA [Concomitant]
  7. LITHIUM CARBONATE [Concomitant]
  8. LENDORM [Concomitant]
  9. NITRAZEPAM [Concomitant]
  10. UBRETID (DISTIGMINE BROMIDE) [Concomitant]
  11. FAMOTIDINE [Concomitant]
  12. APLACE (TROXIPIDE) [Concomitant]
  13. ALLOPURINOL [Concomitant]
  14. MOBIC [Concomitant]
  15. MORPHINE [Concomitant]
  16. PLATELETS [Concomitant]

REACTIONS (7)
  - BRONCHOPNEUMONIA [None]
  - DELIRIUM [None]
  - DISEASE PROGRESSION [None]
  - MULTIPLE MYELOMA [None]
  - PLATELET COUNT DECREASED [None]
  - PYREXIA [None]
  - WHITE BLOOD CELL COUNT DECREASED [None]
